FAERS Safety Report 9155797 (Version 1)
Quarter: 2013Q1

REPORT INFORMATION
  Report Type: Spontaneous
  Country: AR (occurrence: AR)
  Receive Date: 20130311
  Receipt Date: 20130311
  Transmission Date: 20140127
  Serious: Yes (Hospitalization)
  Sender: FDA-Public Use
  Company Number: AR-AMGEN-ARGSP2013016632

PATIENT
  Age: 73 Year
  Sex: Female

DRUGS (2)
  1. ENBREL [Suspect]
     Indication: RHEUMATOID ARTHRITIS
     Dosage: 50 MG, WEEKLY
     Dates: start: 20090727, end: 20121122
  2. ARTRAIT                            /00113801/ [Concomitant]
     Dosage: UNK
     Dates: end: 20121122

REACTIONS (5)
  - White blood cell count decreased [Unknown]
  - Decreased appetite [Unknown]
  - Asthenia [Unknown]
  - Lung infection [Unknown]
  - Anaemia [Unknown]
